FAERS Safety Report 6465458-5 (Version None)
Quarter: 2009Q4

REPORT INFORMATION
  Report Type: 
  Country: None (occurrence: None)
  Receive Date: 20091201
  Receipt Date: 20081118
  Transmission Date: 20100525
  Serious: No
  Sender: FDA-Public Use
  Company Number: US-AMGEN-KDL308346

PATIENT
  Sex: Female

DRUGS (6)
  1. ENBREL [Suspect]
     Indication: PSORIATIC ARTHROPATHY
     Route: 058
     Dates: start: 20070227
  2. ENBREL [Suspect]
     Indication: PSORIASIS
  3. TOPROL-XL [Concomitant]
  4. ACTOS [Concomitant]
  5. ZETIA [Concomitant]
  6. DESOGESTREL AND ETHINYL ESTRADIOL [Concomitant]

REACTIONS (3)
  - INJECTION SITE PAIN [None]
  - PSORIASIS [None]
  - PSORIATIC ARTHROPATHY [None]
